FAERS Safety Report 7034395-X (Version None)
Quarter: 2010Q4

REPORT INFORMATION
  Report Type: 
  Country: None (occurrence: None)
  Receive Date: 20101008
  Receipt Date: 20100927
  Transmission Date: 20110411
  Serious: Yes (Other)
  Sender: FDA-Public Use
  Company Number: US-ELI_LILLY_AND_COMPANY-US201009007620

PATIENT
  Age: 21 Year
  Sex: Male
  Weight: 61.224 kg

DRUGS (2)
  1. ZYPREXA [Suspect]
     Indication: HALLUCINATION
  2. GEODON [Concomitant]
     Indication: PARANOIA
     Dates: start: 20100719, end: 20100727

REACTIONS (16)
  - BLOOD POTASSIUM ABNORMAL [None]
  - BURNING SENSATION [None]
  - DEHYDRATION [None]
  - DEPRESSION [None]
  - DIARRHOEA [None]
  - DIZZINESS [None]
  - DRUG INEFFECTIVE [None]
  - DYSKINESIA [None]
  - GASTROOESOPHAGEAL REFLUX DISEASE [None]
  - HEADACHE [None]
  - HYPOAESTHESIA [None]
  - NAUSEA [None]
  - PHOTOPHOBIA [None]
  - SEXUAL DYSFUNCTION [None]
  - VISION BLURRED [None]
  - WEIGHT INCREASED [None]
